FAERS Safety Report 19700276 (Version 1)
Quarter: 2021Q3

REPORT INFORMATION
  Report Type: Spontaneous
  Country: FR (occurrence: FR)
  Receive Date: 20210813
  Receipt Date: 20210813
  Transmission Date: 20211014
  Serious: Yes (Hospitalization, Other)
  Sender: FDA-Public Use
  Company Number: FR-PFIZER INC-202100995710

PATIENT
  Age: 22 Year
  Sex: Female

DRUGS (5)
  1. ALPRAZOLAM. [Suspect]
     Active Substance: ALPRAZOLAM
     Dosage: 1 DF, AS NEEDED (1 DF OF 0.25 MG, AS NEEDED, INTAKE OF 2 DF OVER THE EPISODE)
     Route: 048
  2. COCAINE [Suspect]
     Active Substance: COCAINE
     Dosage: 2 TO 3 TIMES, WEEKLY
     Route: 065
  3. METHYLENEDIOXYMETHAMPHETAMINE [Suspect]
     Active Substance: MIDOMAFETAMINE
     Dosage: UNK, MONTHLY (1 TIME, MONTHLY)
     Route: 065
  4. ALCOHOL. [Suspect]
     Active Substance: ALCOHOL
     Dosage: UNK, DAILY WITH 3?4 STRONG ALCOHOL INTAKE PER WEEK
     Route: 048
  5. CANNABIS [Suspect]
     Active Substance: CANNABIS SATIVA SUBSP. INDICA TOP
     Dosage: 1 TO 2 TIMES, WEEKLY
     Route: 055

REACTIONS (2)
  - Drug use disorder [Not Recovered/Not Resolved]
  - Substance use disorder [Not Recovered/Not Resolved]
